FAERS Safety Report 8347404-2 (Version None)
Quarter: 2012Q2

REPORT INFORMATION
  Report Type: 
  Country: None (occurrence: None)
  Receive Date: 20120509
  Receipt Date: 20120424
  Transmission Date: 20120825
  Serious: Yes (Other)
  Sender: FDA-Public Use
  Company Number: US-ROCHE-752794

PATIENT
  Sex: Female
  Weight: 63 kg

DRUGS (3)
  1. AVASTIN [Suspect]
     Indication: GLIOMA
     Dosage: 10 MG/KG OVER ^90-30^ MIN ON DAYS 1 AND 15
     Route: 042
  2. COZAAR [Concomitant]
  3. IRINOTECAN HCL [Suspect]
     Indication: GLIOMA
     Dosage: 125-150 MG/M2 OVER 90 MIN Q2W STARTING ON DAY 15
     Route: 042

REACTIONS (1)
  - OSTEONECROSIS [None]
